FAERS Safety Report 8903355 (Version 5)
Quarter: 2013Q2

REPORT INFORMATION
  Report Type: Spontaneous
  Country: US (occurrence: US)
  Receive Date: 20121113
  Receipt Date: 20130425
  Transmission Date: 20140414
  Serious: Yes (Disabling, Other)
  Sender: FDA-Public Use
  Company Number: US-PERRIGO-12US008598

PATIENT
  Age: 84 Year
  Sex: Female
  Weight: 69.39 kg

DRUGS (2)
  1. CLOBETASOL PROPIONATE [Suspect]
     Indication: PSORIASIS
     Dosage: 1/2 CAPFUL, BID
     Route: 061
     Dates: start: 20120918, end: 20120926
  2. CLOBETASOL PROPIONATE [Suspect]
     Indication: SEBORRHOEIC DERMATITIS

REACTIONS (14)
  - Trichorrhexis [Recovering/Resolving]
  - Alopecia [Recovering/Resolving]
  - Visual impairment [Not Recovered/Not Resolved]
  - Swelling face [Not Recovered/Not Resolved]
  - Eye swelling [Not Recovered/Not Resolved]
  - Eyelid oedema [Not Recovered/Not Resolved]
  - Vision blurred [Unknown]
  - Blepharitis [Unknown]
  - Hair colour changes [Not Recovered/Not Resolved]
  - Application site pain [Not Recovered/Not Resolved]
  - Application site erythema [Not Recovered/Not Resolved]
  - Drug ineffective [Unknown]
  - Arthralgia [Unknown]
  - Insomnia [Unknown]
